FAERS Safety Report 9129402 (Version 1)
Quarter: 2013Q1

REPORT INFORMATION
  Report Type: Other
  Country: US (occurrence: US)
  Receive Date: 20130125
  Receipt Date: 20130125
  Transmission Date: 20140127
  Serious: Yes (Death)
  Sender: FDA-Public Use
  Company Number: US-FRI-1000041988

PATIENT
  Age: 42 Year
  Sex: Female

DRUGS (7)
  1. CITALOPRAM [Suspect]
  2. ESCITALOPRAM [Suspect]
  3. LEVOTHROID [Suspect]
  4. QUETIAPINE [Suspect]
  5. HYDROXYZINE [Suspect]
  6. BUSPIRONE [Suspect]
  7. CYCLOBENZAPRINE [Suspect]

REACTIONS (1)
  - Completed suicide [Fatal]
